FAERS Safety Report 9476014 (Version 2)
Quarter: 2013Q3

REPORT INFORMATION
  Report Type: Spontaneous
  Country: BR (occurrence: BR)
  Receive Date: 20130826
  Receipt Date: 20130919
  Transmission Date: 20140515
  Serious: Yes (Other)
  Sender: FDA-Public Use
  Company Number: BR-PFIZER INC-2013243443

PATIENT
  Age: 66 Year
  Sex: Female

DRUGS (1)
  1. DOSTINEX [Suspect]
     Indication: PITUITARY TUMOUR BENIGN
     Dosage: UNK
     Dates: start: 201102

REACTIONS (4)
  - Vaginal haemorrhage [Unknown]
  - Dizziness [Unknown]
  - Abdominal pain [Unknown]
  - Ovarian disorder [Unknown]
